FAERS Safety Report 6091638-7 (Version None)
Quarter: 2009Q1

REPORT INFORMATION
  Report Type: 
  Country: None (occurrence: None)
  Receive Date: 20090225
  Receipt Date: 20080314
  Transmission Date: 20090719
  Serious: No
  Sender: FDA-Public Use
  Company Number: A0715522A

PATIENT
  Age: 37 Year
  Sex: Female

DRUGS (3)
  1. VALTREX [Suspect]
     Route: 048
     Dates: start: 20080312, end: 20080312
  2. ZOVIRAX [Suspect]
  3. NO CONCURRENT MEDICATION [Concomitant]

REACTIONS (2)
  - DRUG INEFFECTIVE [None]
  - ORAL HERPES [None]
